FAERS Safety Report 24552991 (Version 2)
Quarter: 2024Q4

REPORT INFORMATION
  Report Type: Spontaneous
  Country: US (occurrence: US)
  Receive Date: 20241027
  Receipt Date: 20241213
  Transmission Date: 20250115
  Serious: No
  Sender: BAUSCH AND LOMB
  Company Number: US-BAUSCHBL-2024BNL036109

PATIENT
  Age: 60 Year
  Sex: Female

DRUGS (6)
  1. MIEBO [Suspect]
     Active Substance: PERFLUOROHEXYLOCTANE
     Indication: Dry eye
     Dosage: IN THE LEFT EYE
     Route: 047
     Dates: start: 20240228, end: 202403
  2. MIEBO [Suspect]
     Active Substance: PERFLUOROHEXYLOCTANE
     Dosage: 1 DROP IN EACH EYE TWICE A DAY ONLY
     Route: 047
  3. MIEBO [Suspect]
     Active Substance: PERFLUOROHEXYLOCTANE
     Dosage: 1 DROP 4 TIMES A DAY IN EACH EYE
     Route: 047
     Dates: start: 20241015
  4. XDEMVY [Concomitant]
     Active Substance: LOTILANER
     Indication: Product used for unknown indication
     Route: 047
     Dates: start: 20240918, end: 202410
  5. OPTASE [Concomitant]
     Indication: Product used for unknown indication
     Route: 047
  6. IVIZIA [Concomitant]
     Active Substance: POVIDONE
     Indication: Product used for unknown indication
     Route: 047

REACTIONS (6)
  - Eye pain [Recovered/Resolved]
  - Eye irritation [Recovered/Resolved]
  - Product delivery mechanism issue [Unknown]
  - Exposure via skin contact [Unknown]
  - Accidental exposure to product [Unknown]
  - Circumstance or information capable of leading to medication error [Unknown]

NARRATIVE: CASE EVENT DATE: 20241001
